FAERS Safety Report 7020516-1 (Version None)
Quarter: 2010Q3

REPORT INFORMATION
  Report Type: 
  Country: None (occurrence: None)
  Receive Date: 20100929
  Receipt Date: 20100920
  Transmission Date: 20110219
  Serious: Yes (Death, Hospitalization, Other)
  Sender: FDA-Public Use
  Company Number: IL-BAYER-201036050GPV

PATIENT
  Age: 58 Year
  Sex: Male

DRUGS (5)
  1. NAPROXEN [Suspect]
     Indication: OSTEOARTHRITIS
     Route: 048
  2. OLANZAPINE [Suspect]
     Indication: SCHIZOPHRENIA
  3. LITHIUM [Concomitant]
     Indication: SCHIZOPHRENIA
  4. PREDNISONE [Concomitant]
     Indication: VASCULITIS NECROTISING
     Route: 048
  5. PREDNISONE [Concomitant]
     Route: 048

REACTIONS (7)
  - DUODENAL ULCER [None]
  - GASTROINTESTINAL HAEMORRHAGE [None]
  - LEUKOCYTOCLASTIC VASCULITIS [None]
  - PNEUMONIA [None]
  - PYREXIA [None]
  - RASH [None]
  - RESPIRATORY FAILURE [None]
